FAERS Safety Report 14436560 (Version 1)
Quarter: 2018Q1

REPORT INFORMATION
  Report Type: Spontaneous
  Country: US (occurrence: US)
  Receive Date: 20180125
  Receipt Date: 20180125
  Transmission Date: 20180509
  Serious: No
  Sender: FDA-Public Use
  Company Number: US-UNITED THERAPEUTICS-UNT-2017-007776

PATIENT
  Age: 72 Year
  Sex: Female
  Weight: 51.11 kg

DRUGS (4)
  1. REMODULIN [Suspect]
     Active Substance: TREPROSTINIL
     Indication: PULMONARY ARTERIAL HYPERTENSION
     Dosage: 0.008 ?G/KG, CONTINUING
     Route: 058
     Dates: start: 20170519
  2. COUMADIN [Concomitant]
     Active Substance: WARFARIN SODIUM
     Indication: PRODUCT USED FOR UNKNOWN INDICATION
  3. BENADRYL [Suspect]
     Active Substance: DIPHENHYDRAMINE HYDROCHLORIDE
     Indication: PRURITUS
     Dosage: UNK
     Route: 065
  4. ADEMPAS [Concomitant]
     Active Substance: RIOCIGUAT
     Indication: PRODUCT USED FOR UNKNOWN INDICATION

REACTIONS (11)
  - Dyspnoea [Not Recovered/Not Resolved]
  - Flushing [Unknown]
  - Feeling abnormal [Unknown]
  - Feeling hot [Unknown]
  - Nausea [Not Recovered/Not Resolved]
  - Infusion site erythema [Unknown]
  - Dizziness [Unknown]
  - Diarrhoea [Unknown]
  - Dyspnoea exertional [Unknown]
  - Pruritus [Unknown]
  - Infusion site pruritus [Not Recovered/Not Resolved]

NARRATIVE: CASE EVENT DATE: 201705
